FAERS Safety Report 17579934 (Version 1)
Quarter: 2020Q1

REPORT INFORMATION
  Report Type: Spontaneous
  Country: FR (occurrence: FR)
  Receive Date: 20200325
  Receipt Date: 20200325
  Transmission Date: 20200409
  Serious: Yes (Death)
  Sender: FDA-Public Use
  Company Number: FR-ACCORD-176961

PATIENT
  Age: 70 Year
  Sex: Female
  Weight: 60 kg

DRUGS (18)
  1. PARACETAMOL [Concomitant]
     Active Substance: ACETAMINOPHEN
     Route: 048
  2. MORPHINE [Concomitant]
     Active Substance: MORPHINE
     Dosage: PROLONGED RELEASE
     Route: 048
  3. ERBITUX [Concomitant]
     Active Substance: CETUXIMAB
     Dosage: 6 TREATMENTS OF CARBOPLATIN ERBITUX
     Route: 042
     Dates: end: 20200123
  4. LACTULOSE. [Concomitant]
     Active Substance: LACTULOSE
     Route: 048
  5. CLOMIPRAMINE [Concomitant]
     Active Substance: CLOMIPRAMINE
     Dosage: STRENGTH: 75 MG, SCORED FILM-COATED TABLET
     Route: 048
  6. LEVOTHYROX [Concomitant]
     Active Substance: LEVOTHYROXINE
     Dosage: STRENGTH: 100 MICROGRAMS, SCORED TABLET
     Route: 048
  7. CARBAMAZEPINE SANDOZ [Concomitant]
     Active Substance: CARBAMAZEPINE
     Route: 048
  8. FUROSEMIDE. [Concomitant]
     Active Substance: FUROSEMIDE
     Route: 048
  9. ACAMPROSATE [Concomitant]
     Active Substance: ACAMPROSATE
     Route: 048
  10. DIFFU K [Concomitant]
     Active Substance: POTASSIUM CHLORIDE
  11. SPIRONOLACTONE. [Concomitant]
     Active Substance: SPIRONOLACTONE
     Route: 048
  12. MORPHINE [Concomitant]
     Active Substance: MORPHINE
     Dosage: IMMEDIATE RELEASE: EVERY 6 HOURS IF PAIN
     Route: 048
  13. PYRIDOXINE [Concomitant]
     Active Substance: PYRIDOXINE
     Route: 048
  14. THIAMINE. [Concomitant]
     Active Substance: THIAMINE
     Route: 048
  15. ESOMEPRAZOLE. [Concomitant]
     Active Substance: ESOMEPRAZOLE MAGNESIUM
     Route: 048
  16. CARBOPLATIN. [Concomitant]
     Active Substance: CARBOPLATIN
     Dosage: 6 TREATMENTS OF CARBOPLATIN ERBITUX
     Route: 042
     Dates: end: 20200123
  17. PACLITAXEL/PACLITAXEL LIPOSOME [Suspect]
     Active Substance: PACLITAXEL
     Indication: OROPHARYNGEAL SQUAMOUS CELL CARCINOMA
     Dosage: C1J1 (03/02/2020), C1J8 (10/02/2020)
     Route: 042
     Dates: start: 20200203, end: 20200210
  18. ALPRAZOLAM CERA [Concomitant]
     Dosage: STRENGTH: 0.25 MG, SCORED TABLET
     Route: 048

REACTIONS (2)
  - Off label use [Unknown]
  - Interstitial lung disease [Fatal]

NARRATIVE: CASE EVENT DATE: 20200210
